FAERS Safety Report 18293045 (Version 1)
Quarter: 2020Q3

REPORT INFORMATION
  Report Type: Spontaneous
  Country: US (occurrence: US)
  Receive Date: 20200921
  Receipt Date: 20200921
  Transmission Date: 20201103
  Serious: No
  Sender: FDA-Public Use
  Company Number: US-CATALYST PHARMACEUTICALS, INC-2020CAT00444

PATIENT
  Sex: Male
  Weight: 83.9 kg

DRUGS (3)
  1. FIRDAPSE [Suspect]
     Active Substance: AMIFAMPRIDINE PHOSPHATE
     Dosage: 20 MG, 3X/DAY
     Route: 048
     Dates: end: 20200811
  2. FIRDAPSE [Suspect]
     Active Substance: AMIFAMPRIDINE PHOSPHATE
     Indication: MYASTHENIC SYNDROME
     Dosage: UNK
     Route: 048
     Dates: start: 201912
  3. IG [Suspect]
     Active Substance: HUMAN IMMUNOGLOBULIN G
     Route: 042

REACTIONS (6)
  - Pain in extremity [Recovering/Resolving]
  - Asthenia [Recovering/Resolving]
  - Fatigue [Recovered/Resolved]
  - Sluggishness [Recovering/Resolving]
  - Therapeutic response shortened [Recovering/Resolving]
  - Muscular weakness [Recovering/Resolving]
